FAERS Safety Report 23571004 (Version 1)
Quarter: 2024Q1

REPORT INFORMATION
  Report Type: Spontaneous
  Country: US (occurrence: US)
  Receive Date: 20240227
  Receipt Date: 20240227
  Transmission Date: 20240409
  Serious: No
  Sender: FDA-Public Use
  Company Number: US-PFIZER INC-PV202400025898

PATIENT
  Age: 52 Year
  Sex: Female
  Weight: 79.38 kg

DRUGS (3)
  1. LIOTHYRONINE SODIUM [Suspect]
     Active Substance: LIOTHYRONINE SODIUM
     Indication: Hypothyroidism
     Dosage: SPLIT THE PILLS TWICE A DAY DIFFERENT DOSAGE
     Dates: start: 20240111
  2. SYNTHROID [Concomitant]
     Active Substance: LEVOTHYROXINE SODIUM
     Indication: Thyroid disorder
     Dosage: SHE SAID 125 MCG OR 88 MCG ONCE A DAY
  3. SYNTHROID [Concomitant]
     Active Substance: LEVOTHYROXINE SODIUM
     Dosage: SHE SAID 125 MCG OR 88 MCG ONCE A DAY

REACTIONS (4)
  - Drug ineffective [Unknown]
  - Malabsorption [Unknown]
  - Product complaint [Unknown]
  - Thyroid function test abnormal [Unknown]
